FAERS Safety Report 9867467 (Version 1)
Quarter: 2014Q1

REPORT INFORMATION
  Report Type: Spontaneous
  Country: US (occurrence: US)
  Receive Date: 20140204
  Receipt Date: 20140204
  Transmission Date: 20141002
  Serious: Yes (Other)
  Sender: FDA-Public Use
  Company Number: US-PFIZER INC-2014029171

PATIENT
  Age: 47 Year
  Sex: Male
  Weight: 68.03 kg

DRUGS (10)
  1. LYRICA [Suspect]
     Indication: JOINT DISLOCATION
     Dosage: 450 MG, 1X/DAY
     Route: 048
  2. LYRICA [Suspect]
     Indication: JOINT INJURY
  3. LYRICA [Suspect]
     Indication: WINGED SCAPULA
  4. LYRICA [Suspect]
     Indication: LONG THORACIC NERVE PALSY
  5. IBUPROFEN [Suspect]
     Dosage: UNK
  6. METHADONE [Suspect]
     Dosage: UNK
  7. CYMBALTA [Concomitant]
     Dosage: UNK
  8. LISINOPRIL [Concomitant]
     Dosage: UNK
  9. XANAX [Concomitant]
     Dosage: UNK
  10. OXYCODONE [Concomitant]
     Dosage: UNK

REACTIONS (6)
  - Off label use [Unknown]
  - Neuralgia [Unknown]
  - Depression [Unknown]
  - Impaired driving ability [Unknown]
  - Chest pain [Unknown]
  - Pain [Unknown]
